FAERS Safety Report 8510684 (Version 2)
Quarter: 2012Q4

REPORT INFORMATION
  Report Type: Spontaneous
  Country: US (occurrence: None)
  Receive Date: 20120309
  Receipt Date: 20120907
  Transmission Date: 20130627
  Serious: Yes (Other)
  Sender: FDA-Public Use
  Company Number: TH-2011-00503

PATIENT
  Age: 51 Year
  Sex: Female
  Weight: 95 kg

DRUGS (4)
  1. EGRIFTA [Suspect]
     Indication: LIPODYSTROPHY ACQUIRED
     Dosage: 1 IN 1 D, SUBCUTANEOUS
     Route: 058
     Dates: start: 201104, end: 201111
  2. DIABETIC MEDICATIONS [Concomitant]
  3. ANTI-RETROVIRALS [Concomitant]
  4. METFORMIN (METFORMIN) [Concomitant]

REACTIONS (5)
  - Blood glucose increased [None]
  - Headache [None]
  - Fatigue [None]
  - Vision blurred [None]
  - Pruritus [None]
